FAERS Safety Report 12614708 (Version 1)
Quarter: 2020Q3

REPORT INFORMATION
  Report Type: Report from Study
  Country: CH (occurrence: CH)
  Receive Date: 20160802
  Receipt Date: 20160802
  Transmission Date: 20201105
  Serious: Yes (Death, Life-Threatening)
  Sender: FDA-Public Use
  Company Number: CH-JNJFOC-20160426070

PATIENT
  Age: 48 Year
  Sex: Female
  Weight: 76.6 kg

DRUGS (14)
  1. TRABECTEDIN [Suspect]
     Active Substance: TRABECTEDIN
     Indication: OVARIAN CANCER
     Dosage: TOTAL DOSE 2.1 MG, CYCLE 1 DAY 1
     Route: 042
     Dates: start: 20160420
  2. CANDESARTAN. [Concomitant]
     Active Substance: CANDESARTAN
     Indication: HYPERTENSION
     Route: 048
  3. DEXAMETHASONE. [Concomitant]
     Active Substance: DEXAMETHASONE
     Indication: PREMEDICATION
     Route: 042
  4. TRABECTEDIN [Suspect]
     Active Substance: TRABECTEDIN
     Indication: OVARIAN CANCER
     Dosage: TOTAL DOSE 2.1 MG, CYCLE 1 DAY 1
     Route: 042
     Dates: start: 20160401
  5. METOPROLOL. [Concomitant]
     Active Substance: METOPROLOL
     Indication: HYPERTENSION
     Route: 048
  6. FRAXIPARINE FORTE [Concomitant]
     Indication: DEEP VEIN THROMBOSIS
     Dosage: ADMINISTERED AT BEDTIME
     Route: 058
  7. PRIMPERAN [Concomitant]
     Active Substance: METOCLOPRAMIDE HYDROCHLORIDE
     Indication: NAUSEA
     Route: 048
  8. VENLAFAXIN [Concomitant]
     Active Substance: VENLAFAXINE HYDROCHLORIDE
     Indication: DEPRESSION
     Route: 048
  9. MARCOUMAR [Concomitant]
     Active Substance: PHENPROCOUMON
     Indication: DEEP VEIN THROMBOSIS
     Route: 048
  10. DOXORUBICIN HYDROCHLORIDE. [Suspect]
     Active Substance: DOXORUBICIN HYDROCHLORIDE
     Indication: OVARIAN CANCER
     Dosage: TOTAL DOSE 57 MG, CYCLE 1 DAY 1
     Route: 042
     Dates: start: 20160401
  11. CANDESARTAN. [Concomitant]
     Active Substance: CANDESARTAN
     Indication: HYPERTENSION
     Dosage: ADMINISTERED TWICE IN THE MORNING
     Route: 048
  12. CLYSTER [Concomitant]
     Indication: CONSTIPATION
     Route: 054
  13. DOXORUBICIN HYDROCHLORIDE. [Suspect]
     Active Substance: DOXORUBICIN HYDROCHLORIDE
     Indication: OVARIAN CANCER
     Dosage: TOTAL DOSE 37 MG, CYCLE 2 DAY 1
     Route: 042
     Dates: start: 20160420
  14. AMLODIPINE [Concomitant]
     Active Substance: AMLODIPINE BESYLATE
     Indication: HYPERTENSION
     Route: 048

REACTIONS (1)
  - Death [Fatal]
